FAERS Safety Report 9463199 (Version 3)
Quarter: 2014Q2

REPORT INFORMATION
  Report Type: Spontaneous
  Country: IT (occurrence: IT)
  Receive Date: 20130818
  Receipt Date: 20140407
  Transmission Date: 20141212
  Serious: Yes (Hospitalization)
  Sender: FDA-Public Use
  Company Number: PHHY2013IT087343

PATIENT
  Sex: Female

DRUGS (5)
  1. ALLOPURINOL [Suspect]
     Indication: HYPERURICAEMIA
     Dosage: 300 MG, QD
     Route: 048
     Dates: start: 20130201, end: 20130625
  2. LUVION [Concomitant]
     Dosage: 50 MG, UNK
     Route: 048
  3. FUROSEMIDE [Concomitant]
     Dosage: 150 MG/DL, UNK
     Route: 048
  4. CARVEDILOL [Concomitant]
     Dosage: 12.5 MG, UNK
  5. RAMIPRIL [Concomitant]
     Dosage: 10 MG, UNK
     Route: 048

REACTIONS (1)
  - Skin discolouration [Recovering/Resolving]
